FAERS Safety Report 23777481 (Version 1)
Quarter: 2024Q2

REPORT INFORMATION
  Report Type: Spontaneous
  Country: AU (occurrence: AU)
  Receive Date: 20240424
  Receipt Date: 20240424
  Transmission Date: 20240715
  Serious: Yes (Hospitalization, Other)
  Sender: FDA-Public Use
  Company Number: AU-ASTELLAS-2024US011828

PATIENT
  Age: 68 Year
  Sex: Female

DRUGS (12)
  1. TACROLIMUS [Interacting]
     Active Substance: TACROLIMUS
     Indication: Lung transplant
     Dosage: 3.5 MG, ONCE DAILY (DAY 0)
     Route: 065
  2. TACROLIMUS [Interacting]
     Active Substance: TACROLIMUS
     Dosage: 3.5 MG, ONCE DAILY (DAY 3)
     Route: 065
  3. TACROLIMUS [Interacting]
     Active Substance: TACROLIMUS
     Dosage: 3.5 MG, ONCE DAILY (DAY 4)
     Route: 065
  4. TACROLIMUS [Interacting]
     Active Substance: TACROLIMUS
     Dosage: 3.5 MG, ONCE DAILY (DAY 5)
     Route: 065
  5. TACROLIMUS [Interacting]
     Active Substance: TACROLIMUS
     Dosage: 3.5 MG, ONCE DAILY (DAY 6)
     Route: 065
  6. TACROLIMUS [Interacting]
     Active Substance: TACROLIMUS
     Dosage: 3.5 MG, ONCE DAILY (DAY 7)
     Route: 065
  7. TACROLIMUS [Interacting]
     Active Substance: TACROLIMUS
     Dosage: 3.5 MG, ONCE DAILY (DAY 8)
     Route: 065
  8. PAXLOVID [Interacting]
     Active Substance: NIRMATRELVIR\RITONAVIR
     Indication: COVID-19
     Dosage: UNK UNK, UNKNOWN FREQ.
     Route: 065
  9. PHENYTOIN [Interacting]
     Active Substance: PHENYTOIN
     Indication: Product used for unknown indication
     Dosage: 975 MG, UNKNOWN FREQ (DAY 1)
     Route: 042
  10. PHENYTOIN [Interacting]
     Active Substance: PHENYTOIN
     Dosage: 100 MG, TWICE DAILY (DAY 2)
     Route: 042
  11. PHENYTOIN [Interacting]
     Active Substance: PHENYTOIN
     Dosage: 100 MG, TWICE DAILY (DAY 3)
     Route: 042
  12. PHENYTOIN [Interacting]
     Active Substance: PHENYTOIN
     Dosage: 100 MG, ONCE DAILY (DAY 4)
     Route: 042

REACTIONS (5)
  - Toxicity to various agents [Recovered/Resolved]
  - Acute kidney injury [Recovered/Resolved]
  - COVID-19 [Unknown]
  - Drug interaction [Recovered/Resolved]
  - Drug interaction [Recovered/Resolved]
